FAERS Safety Report 4573779-6 (Version None)
Quarter: 2005Q1

REPORT INFORMATION
  Report Type: 
  Country: None (occurrence: None)
  Receive Date: 20050203
  Receipt Date: 20050121
  Transmission Date: 20050727
  Serious: Yes (Hospitalization, Other)
  Sender: FDA-Public Use
  Company Number: 2005BI001563

PATIENT
  Sex: Female

DRUGS (4)
  1. AVONEX [Suspect]
     Indication: MULTIPLE SCLEROSIS
     Dosage: 30 UG; QW; IM
     Route: 030
     Dates: start: 19990101
  2. AVONEX [Suspect]
     Indication: MULTIPLE SCLEROSIS
     Dosage: IM
     Route: 030
  3. ZOLOFT [Concomitant]
  4. LEXAPRO [Concomitant]

REACTIONS (4)
  - BLOOD ELECTROLYTES DECREASED [None]
  - BLOOD POTASSIUM DECREASED [None]
  - COLITIS ULCERATIVE [None]
  - HAEMORRHAGE [None]
